FAERS Safety Report 16742039 (Version 1)
Quarter: 2019Q3

REPORT INFORMATION
  Report Type: Spontaneous
  Country: GB (occurrence: GB)
  Receive Date: 20190826
  Receipt Date: 20190826
  Transmission Date: 20191005
  Serious: Yes (Disabling)
  Sender: FDA-Public Use
  Company Number: GB-TEVA-2019-GB-1096092

PATIENT
  Age: 78 Year
  Sex: Female
  Weight: 69 kg

DRUGS (10)
  1. SODIUM ALGINATE [Concomitant]
     Active Substance: SODIUM ALGINATE
     Dosage: 1 OR 2 TO BE TAKEN FOUR TIMES DAILY
     Dates: start: 20180110
  2. CALCEOS [Concomitant]
     Active Substance: CALCIUM CARBONATE\CHOLECALCIFEROL
     Dosage: 2 DF
     Dates: start: 20180110
  3. LEVOTHYROXINE. [Concomitant]
     Active Substance: LEVOTHYROXINE
     Dosage: EACH MORNING, 1 DF
     Dates: start: 20180110
  4. BISACODYL. [Concomitant]
     Active Substance: BISACODYL
     Dosage: AT NIGHT, UP TO FOUR IF NEEDED
     Dates: start: 20180110, end: 20190510
  5. METFORMIN [Concomitant]
     Active Substance: METFORMIN HYDROCHLORIDE
     Dosage: 2 DF
     Dates: start: 20180110
  6. DICLOFENAC DIETHYLAMINE [Concomitant]
     Active Substance: DICLOFENAC DIETHYLAMINE
     Dosage: 3 TIMES/DAY. 1 DF
     Dates: start: 20190409
  7. BETAMETHASONE VALERATE. [Concomitant]
     Active Substance: BETAMETHASONE VALERATE
     Dosage: 2 DF
     Dates: start: 20180110, end: 20190510
  8. HYDROXOCOBALAMIN [Concomitant]
     Active Substance: HYDROXOCOBALAMIN
     Dosage: 1 DF
     Dates: start: 20180601
  9. NITROFURANTOIN. [Suspect]
     Active Substance: NITROFURANTOIN
     Dosage: 100 MG
     Dates: start: 20190719
  10. ATORVASTATIN [Concomitant]
     Active Substance: ATORVASTATIN
     Dosage: 1 DF
     Dates: start: 20180110

REACTIONS (2)
  - Accidental overdose [Recovering/Resolving]
  - Vomiting [Recovering/Resolving]

NARRATIVE: CASE EVENT DATE: 20190719
